FAERS Safety Report 5257603-4 (Version None)
Quarter: 2007Q1

REPORT INFORMATION
  Report Type: 
  Country: None (occurrence: None)
  Receive Date: 20070307
  Receipt Date: 20070117
  Transmission Date: 20070707
  Serious: No
  Sender: FDA-Public Use
  Company Number: US-GLAXOSMITHKLINE-A0633228A

PATIENT
  Age: 80 Year
  Sex: Female

DRUGS (6)
  1. REQUIP [Suspect]
     Indication: RESTLESS LEGS SYNDROME
     Dosage: 1MG AT NIGHT
     Route: 048
     Dates: start: 20050801
  2. INDERAL [Concomitant]
  3. LASIX [Concomitant]
  4. POTASSIUM ACETATE [Concomitant]
  5. VITAMINS [Concomitant]
  6. DUONEB [Concomitant]

REACTIONS (1)
  - INSOMNIA [None]
